FAERS Safety Report 17061757 (Version 4)
Quarter: 2020Q2

REPORT INFORMATION
  Report Type: Report from Study
  Country: US (occurrence: US)
  Receive Date: 20191121
  Receipt Date: 20200421
  Transmission Date: 20200713
  Serious: Yes (Hospitalization)
  Sender: FDA-Public Use
  Company Number: US-ACTELION-A-NJ2019-198282

PATIENT
  Age: 26 Year
  Sex: Female
  Weight: 54.42 kg

DRUGS (4)
  1. VELETRI [Suspect]
     Active Substance: EPOPROSTENOL
     Dosage: 32 NG/KG, PER MIN
     Route: 042
  2. VELETRI [Suspect]
     Active Substance: EPOPROSTENOL
     Dosage: 28 NG/KG, PER MIN
     Route: 042
  3. VELETRI [Suspect]
     Active Substance: EPOPROSTENOL
     Dosage: 33 NG/KG, PER MIN
     Route: 042
  4. VELETRI [Suspect]
     Active Substance: EPOPROSTENOL
     Indication: PULMONARY HYPERTENSION
     Dosage: UNK
     Route: 042

REACTIONS (7)
  - Dyspnoea [Unknown]
  - Fluid retention [Unknown]
  - Chest pain [Unknown]
  - Hypersensitivity [Unknown]
  - Hospitalisation [Unknown]
  - Syncope [Unknown]
  - Rash [Unknown]

NARRATIVE: CASE EVENT DATE: 20191226
